FAERS Safety Report 5976544-8 (Version None)
Quarter: 2008Q4

REPORT INFORMATION
  Report Type: 
  Country: None (occurrence: None)
  Receive Date: 20081125
  Receipt Date: 20081114
  Transmission Date: 20090506
  Serious: Yes (Hospitalization)
  Sender: FDA-Public Use
  Company Number: 2008-04144

PATIENT
  Age: 71 Year
  Sex: Female

DRUGS (19)
  1. VELCADE [Suspect]
     Indication: MULTIPLE MYELOMA
     Dosage: 2.2 MG, INTRAVENOUS, 1.8 MG, INTRAVENOUS, 2.3 MG, INTRAVENOUS
     Route: 042
     Dates: start: 20080805
  2. VELCADE [Suspect]
  3. VELCADE [Suspect]
  4. VELCADE [Suspect]
  5. VELCADE [Suspect]
  6. FUROSEMIDE [Concomitant]
  7. AMLODIPINE [Concomitant]
  8. METOCLOPRAMIDE [Concomitant]
  9. DEXAMETHASONE [Concomitant]
  10. LANSOPRAZOLE [Concomitant]
  11. FLUCONAZOLE [Concomitant]
  12. SULFAMETHOXAZOLE AND TRIMETHOPRIM [Concomitant]
  13. CHLORHEXIDINE (CHLORHEXIDINE) [Concomitant]
  14. ACYCLOVIR [Concomitant]
  15. ALLOPURINOL [Concomitant]
  16. CIPROFLOXACIN [Concomitant]
  17. PIPERACILLIN SODIUM AND TAZOBACTAM SODIUM [Concomitant]
  18. METRONIDAZOLE [Concomitant]
  19. DARBEPOETIN ALDA (DARBEPOETIN ALFA) [Concomitant]

REACTIONS (2)
  - DRUG INEFFECTIVE [None]
  - DYSPNOEA [None]
